FAERS Safety Report 23315356 (Version 3)
Quarter: 2024Q2

REPORT INFORMATION
  Report Type: Report from Study
  Country: US (occurrence: US)
  Receive Date: 20231219
  Receipt Date: 20240528
  Transmission Date: 20240716
  Serious: Yes (Other)
  Sender: FDA-Public Use
  Company Number: US-MYLANLABS-2023M1132316

PATIENT
  Sex: Female
  Weight: 81.64 kg

DRUGS (2)
  1. GLATIRAMER ACETATE [Suspect]
     Active Substance: GLATIRAMER ACETATE
     Indication: Relapsing-remitting multiple sclerosis
     Dosage: 40 MILLIGRAM, 3XW (3 TIMES A WEEK)
     Route: 065
  2. GLATIRAMER ACETATE [Suspect]
     Active Substance: GLATIRAMER ACETATE
     Indication: Multiple sclerosis

REACTIONS (6)
  - Multiple sclerosis relapse [Unknown]
  - Paraesthesia [Unknown]
  - Adverse event [Unknown]
  - Injection site mass [Recovered/Resolved]
  - Injection site pruritus [Unknown]
  - Injection site pain [Unknown]
